FAERS Safety Report 15149502 (Version 2)
Quarter: 2019Q1

REPORT INFORMATION
  Report Type: Spontaneous
  Country: US (occurrence: US)
  Receive Date: 20180716
  Receipt Date: 20190328
  Transmission Date: 20190417
  Serious: No
  Sender: FDA-Public Use
  Company Number: US-PFIZER INC-2018281907

PATIENT
  Age: 17 Year
  Sex: Female

DRUGS (3)
  1. GENOTROPIN [Suspect]
     Active Substance: SOMATROPIN
     Indication: BODY HEIGHT BELOW NORMAL
  2. GENOTROPIN [Suspect]
     Active Substance: SOMATROPIN
     Indication: CONGENITAL ANOMALY
     Dosage: UNK (REDUCED GH DOSE)
  3. GENOTROPIN [Suspect]
     Active Substance: SOMATROPIN
     Indication: PRADER-WILLI SYNDROME
     Dosage: 1.6 MG, DAILY

REACTIONS (3)
  - Macrognathia [Unknown]
  - Hypoglycaemia [Not Recovered/Not Resolved]
  - Abnormal behaviour [Unknown]
